FAERS Safety Report 24706894 (Version 2)
Quarter: 2025Q1

REPORT INFORMATION
  Report Type: Report from Study
  Country: CA (occurrence: CA)
  Receive Date: 20241206
  Receipt Date: 20250102
  Transmission Date: 20250408
  Serious: Yes (Other)
  Sender: TAKEDA
  Company Number: CA-TAKEDA-2023TUS050577

PATIENT
  Age: 17 Year
  Sex: Female

DRUGS (11)
  1. VEDOLIZUMAB [Suspect]
     Active Substance: VEDOLIZUMAB
     Indication: Colitis ulcerative
  2. VEDOLIZUMAB [Suspect]
     Active Substance: VEDOLIZUMAB
     Indication: Crohn^s disease
  3. VEDOLIZUMAB [Suspect]
     Active Substance: VEDOLIZUMAB
  4. VEDOLIZUMAB [Suspect]
     Active Substance: VEDOLIZUMAB
     Dosage: 300 MILLIGRAM, Q4WEEKS
     Dates: start: 20241227
  5. HUMIRA [Concomitant]
     Active Substance: ADALIMUMAB
  6. IMURAN [Concomitant]
     Active Substance: AZATHIOPRINE
  7. IMURAN [Concomitant]
     Active Substance: AZATHIOPRINE
  8. PENTASA [Concomitant]
     Active Substance: MESALAMINE
  9. PENTASA [Concomitant]
     Active Substance: MESALAMINE
  10. CLARITHRO [Concomitant]
  11. CITALOPRAM [Concomitant]
     Active Substance: CITALOPRAM

REACTIONS (4)
  - Haematochezia [Recovered/Resolved]
  - Inflammatory bowel disease [Unknown]
  - Abdominal pain [Recovered/Resolved]
  - Off label use [Unknown]

NARRATIVE: CASE EVENT DATE: 20230518
